FAERS Safety Report 8521330 (Version 2)
Quarter: 2012Q4

REPORT INFORMATION
  Report Type: Report from Study
  Country: US (occurrence: US)
  Receive Date: 20120419
  Receipt Date: 20120831
  Transmission Date: 20130627
  Serious: Yes (Death)
  Sender: FDA-Public Use
  Company Number: US-US-EMD SERONO, INC.-7126881

PATIENT
  Sex: Male
  Weight: 79 kg

DRUGS (8)
  1. NOVANTRONE [Suspect]
     Indication: MULTIPLE SCLEROSIS
     Route: 042
     Dates: start: 20010425
  2. NOVANTRONE [Suspect]
     Route: 042
     Dates: start: 20010725
  3. NOVANTRONE [Suspect]
     Route: 042
     Dates: start: 20011024
  4. NOVANTRONE [Suspect]
     Route: 042
     Dates: start: 20020123
  5. NOVANTRONE [Suspect]
     Route: 042
     Dates: start: 20030226
  6. NOVANTRONE [Suspect]
     Route: 042
     Dates: start: 20030512
  7. NOVANTRONE [Suspect]
     Route: 042
     Dates: start: 20030815
  8. NOVANTRONE [Suspect]
     Route: 042
     Dates: start: 20031106

REACTIONS (3)
  - Myocardial infarction [Fatal]
  - Coronary artery occlusion [Fatal]
  - Infection [Unknown]
